FAERS Safety Report 8302531-0 (Version None)
Quarter: 2012Q2

REPORT INFORMATION
  Report Type: 
  Country: None (occurrence: None)
  Receive Date: 20120420
  Receipt Date: 20120413
  Transmission Date: 20120825
  Serious: Yes (Hospitalization, Other)
  Sender: FDA-Public Use
  Company Number: US-ASTRAZENECA-2011SE01707

PATIENT
  Age: 55 Year
  Sex: Female

DRUGS (3)
  1. NEXIUM [Suspect]
     Route: 048
  2. TOPROL-XL [Suspect]
     Route: 048
  3. CRESTOR [Suspect]
     Route: 048

REACTIONS (7)
  - INTENTIONAL DRUG MISUSE [None]
  - PNEUMONIA [None]
  - APHAGIA [None]
  - MALAISE [None]
  - MYOCARDIAL INFARCTION [None]
  - TOOTH DISORDER [None]
  - BRONCHITIS [None]
